FAERS Safety Report 9432504 (Version 1)
Quarter: 2013Q3

REPORT INFORMATION
  Report Type: Spontaneous
  Country: US (occurrence: US)
  Receive Date: 20130731
  Receipt Date: 20130731
  Transmission Date: 20140515
  Serious: Yes (Disabling, Other)
  Sender: FDA-Public Use
  Company Number: US-BAYER-2013-090941

PATIENT
  Age: 27 Year
  Sex: Male
  Weight: 86.17 kg

DRUGS (7)
  1. BETASERON [Suspect]
     Dosage: 1 ML, QOD
     Route: 058
  2. VITAMIN D [Concomitant]
  3. IRON [Concomitant]
  4. BACTRIM [Concomitant]
  5. VITAMIN B12 [Concomitant]
  6. BACLOFEN [Concomitant]
  7. METAMUCIL [Concomitant]

REACTIONS (3)
  - Abasia [Unknown]
  - Fatigue [Unknown]
  - Influenza like illness [Unknown]
